FAERS Safety Report 26161049 (Version 1)
Quarter: 2025Q4

REPORT INFORMATION
  Report Type: Spontaneous
  Country: US (occurrence: US)
  Receive Date: 20251216
  Receipt Date: 20251216
  Transmission Date: 20260117
  Serious: No
  Sender: ALCON
  Company Number: US-ALCON LABORATORIES-ALC2025US006707

PATIENT
  Sex: Male

DRUGS (1)
  1. ACOLTREMON [Suspect]
     Active Substance: ACOLTREMON
     Indication: Corneal scar
     Dosage: 1 DROP INTO EACH EYE TWICE A DAY
     Route: 047
     Dates: start: 20251027

REACTIONS (1)
  - Eye irritation [Recovered/Resolved]
